FAERS Safety Report 14756006 (Version 1)
Quarter: 2018Q2

REPORT INFORMATION
  Report Type: Spontaneous
  Country: US (occurrence: US)
  Receive Date: 20180413
  Receipt Date: 20180413
  Transmission Date: 20180711
  Serious: No
  Sender: FDA-Public Use
  Company Number: US-ALKEM LABORATORIES LIMITED-US-ALKEM-2017-00375

PATIENT
  Age: 53 Year
  Sex: Male

DRUGS (9)
  1. QUETIAPINE FUMARATE. [Suspect]
     Active Substance: QUETIAPINE FUMARATE
     Indication: OBSESSIVE-COMPULSIVE DISORDER
  2. QUETIAPINE FUMARATE. [Suspect]
     Active Substance: QUETIAPINE FUMARATE
     Indication: MAJOR DEPRESSION
     Dosage: 50 MG, OD (NIGHTLY)
  3. GABAPENTIN. [Concomitant]
     Active Substance: GABAPENTIN
     Indication: OBSESSIVE-COMPULSIVE DISORDER
  4. BUPROPION-XL [Concomitant]
     Indication: MAJOR DEPRESSION
     Dosage: 300 MG, QD
  5. QUETIAPINE FUMARATE. [Suspect]
     Active Substance: QUETIAPINE FUMARATE
     Indication: SOCIAL ANXIETY DISORDER
  6. GABAPENTIN. [Concomitant]
     Active Substance: GABAPENTIN
     Indication: MAJOR DEPRESSION
     Dosage: 1200 MG, QD
  7. GABAPENTIN. [Concomitant]
     Active Substance: GABAPENTIN
     Indication: SOCIAL ANXIETY DISORDER
  8. BUPROPION-XL [Concomitant]
     Indication: OBSESSIVE-COMPULSIVE DISORDER
     Dosage: 450 MG, QD
  9. BUPROPION-XL [Concomitant]
     Indication: SOCIAL ANXIETY DISORDER

REACTIONS (1)
  - Oculogyric crisis [Recovering/Resolving]
